FAERS Safety Report 17488192 (Version 1)
Quarter: 2020Q1

REPORT INFORMATION
  Report Type: Spontaneous
  Country: CN (occurrence: CN)
  Receive Date: 20200303
  Receipt Date: 20200303
  Transmission Date: 20200409
  Serious: Yes (Disabling, Other)
  Sender: FDA-Public Use
  Company Number: CN-PFIZER INC-2020091595

PATIENT
  Age: 76 Year
  Sex: Male
  Weight: 42 kg

DRUGS (5)
  1. EN BI PU [Suspect]
     Active Substance: DIBUTYL PHTHALATE
     Indication: CEREBRAL INFARCTION
     Dosage: 0.200 G, 3X/DAY
     Route: 048
     Dates: start: 20200201, end: 20200217
  2. PAN LI SU [Concomitant]
     Active Substance: PANTOPRAZOLE SODIUM
     Indication: CEREBRAL INFARCTION
     Dosage: 20.000 MG, 1X/DAY
     Route: 048
     Dates: start: 20200201, end: 20200211
  3. ASPIRIN (E.C.) [Concomitant]
     Active Substance: ASPIRIN
     Indication: CEREBRAL INFARCTION
     Dosage: 0.100 G, 1X/DAY
     Route: 048
     Dates: start: 20200201, end: 20200210
  4. ROCEPHIN [Concomitant]
     Active Substance: CEFTRIAXONE SODIUM
     Indication: PNEUMONIA
     Dosage: 2.000 G, 1X/DAY
     Route: 041
     Dates: start: 20200205, end: 20200209
  5. LIPITOR [Suspect]
     Active Substance: ATORVASTATIN CALCIUM
     Indication: CEREBRAL INFARCTION
     Dosage: 20 MG, 1X/DAY
     Route: 048
     Dates: start: 20200201, end: 20200217

REACTIONS (2)
  - Hepatic function abnormal [Unknown]
  - Pneumonia [Unknown]

NARRATIVE: CASE EVENT DATE: 20200205
